FAERS Safety Report 7351936-3 (Version None)
Quarter: 2011Q1

REPORT INFORMATION
  Report Type: 
  Country: None (occurrence: None)
  Receive Date: 20110315
  Receipt Date: 20110303
  Transmission Date: 20110831
  Serious: Yes (Other)
  Sender: FDA-Public Use
  Company Number: US-JNJFOC-20110302290

PATIENT
  Age: 4 Year
  Sex: Male

DRUGS (4)
  1. CONCENTRATED TYLENOL INFANT DROPS [Suspect]
     Indication: PYREXIA
     Dosage: NOT MORE THAN TWICE A DAY
     Route: 065
  2. CONCENTRATED TYLENOL INFANT DROPS [Suspect]
     Indication: VIRAL INFECTION
     Dosage: NOT MORE THAN TWICE A DAY
     Route: 048
  3. CONCENTRATED TYLENOL INFANT DROPS [Suspect]
     Indication: PYREXIA
     Dosage: NOT MORE THAN TWICE A DAY
     Route: 048
  4. CONCENTRATED TYLENOL INFANT DROPS [Suspect]
     Indication: VIRAL INFECTION
     Dosage: NOT MORE THAN TWICE A DAY
     Route: 065

REACTIONS (4)
  - BLOOD LEAD [None]
  - PRODUCT QUALITY ISSUE [None]
  - EXPIRED DRUG ADMINISTERED [None]
  - PYREXIA [None]
